FAERS Safety Report 5963120-6 (Version None)
Quarter: 2008Q4

REPORT INFORMATION
  Report Type: 
  Country: None (occurrence: None)
  Receive Date: 20081124
  Receipt Date: 20081114
  Transmission Date: 20090506
  Serious: Yes (Hospitalization)
  Sender: FDA-Public Use
  Company Number: CA-JNJFOC-20080806324

PATIENT
  Age: 65 Year
  Sex: Male
  Weight: 78.5 kg

DRUGS (10)
  1. REMICADE [Suspect]
     Dosage: LATEST INFUSION
     Route: 042
  2. REMICADE [Suspect]
     Dosage: 62 INFUSIONS
     Route: 042
  3. REMICADE [Suspect]
     Indication: RHEUMATOID ARTHRITIS
     Dosage: TREATMENT INITIATED
     Route: 042
  4. METHOTREXATE [Concomitant]
     Route: 048
  5. FOLIC ACID [Concomitant]
  6. CELEBREX [Concomitant]
  7. SULFASALAZINE [Concomitant]
  8. ALBUTEROL SULFATE [Concomitant]
  9. SYMBICORT [Concomitant]
  10. SPIRIVA [Concomitant]

REACTIONS (2)
  - EMPHYSEMA [None]
  - PNEUMONIA [None]
